FAERS Safety Report 8564673-4 (Version None)
Quarter: 2012Q3

REPORT INFORMATION
  Report Type: 
  Country: None (occurrence: None)
  Receive Date: 20120803
  Receipt Date: 20120725
  Transmission Date: 20120928
  Serious: Yes (Death, Hospitalization)
  Sender: FDA-Public Use
  Company Number: IT-CELGENEUS-083-21880-12032703

PATIENT
  Sex: Female

DRUGS (18)
  1. REVLIMID [Suspect]
     Route: 048
     Dates: start: 20100827, end: 20110928
  2. VANCOMYCIN [Concomitant]
     Route: 065
  3. LENOGRASTIM [Concomitant]
     Route: 065
     Dates: start: 20120111
  4. LAMIVUDINE [Concomitant]
     Route: 065
  5. AMBISOME [Concomitant]
     Route: 065
  6. MERREM [Concomitant]
     Route: 065
  7. LENOGRASTIM [Concomitant]
     Route: 065
     Dates: start: 20100727, end: 20110916
  8. NEXIUM [Concomitant]
     Route: 065
  9. TARGOCID [Concomitant]
     Route: 065
  10. REVLIMID [Suspect]
     Route: 048
     Dates: start: 20100627, end: 20110916
  11. ASPIRIN [Concomitant]
     Route: 065
  12. DAUNORUBICIN HCL [Concomitant]
     Indication: DISEASE PROGRESSION
     Route: 065
  13. POTASSIUM CHLORIDE [Concomitant]
     Route: 065
  14. TYGACIL [Concomitant]
     Route: 065
  15. TRANEX [Concomitant]
     Route: 065
  16. PREDNISONE TAB [Concomitant]
     Route: 065
  17. LATANOPROST [Concomitant]
     Route: 065
  18. TRUSOPT [Concomitant]
     Route: 065

REACTIONS (2)
  - ACUTE MYELOID LEUKAEMIA [None]
  - LEUKOPENIA [None]
